FAERS Safety Report 23396857 (Version 2)
Quarter: 2024Q1

REPORT INFORMATION
  Report Type: Spontaneous
  Country: KR (occurrence: KR)
  Receive Date: 20240112
  Receipt Date: 20240206
  Transmission Date: 20240410
  Serious: No
  Sender: FDA-Public Use
  Company Number: KR-PFIZER INC-PV202300205980

PATIENT
  Age: 7 Year
  Sex: Male

DRUGS (1)
  1. NGENLA [Suspect]
     Active Substance: SOMATROGON-GHLA
     Dosage: 14 MG, WEEKLY
     Route: 058
     Dates: start: 20231115

REACTIONS (1)
  - Injection site pain [Recovered/Resolved]
